FAERS Safety Report 8011554-0 (Version None)
Quarter: 2011Q4

REPORT INFORMATION
  Report Type: 
  Country: None (occurrence: None)
  Receive Date: 20111228
  Receipt Date: 20111220
  Transmission Date: 20120403
  Serious: No
  Sender: FDA-Public Use
  Company Number: US-PFIZER INC-2011298492

PATIENT
  Sex: Female

DRUGS (4)
  1. LYRICA [Suspect]
     Dosage: 50 MG, 3X/DAY
  2. LYRICA [Suspect]
     Dosage: 50 MG, 4X/DAY
  3. LYRICA [Suspect]
     Dosage: 50 MG
  4. LYRICA [Suspect]
     Dosage: 100 MG

REACTIONS (1)
  - DRUG INEFFECTIVE [None]
